FAERS Safety Report 20741706 (Version 3)
Quarter: 2022Q2

REPORT INFORMATION
  Report Type: Report from Study
  Country: CO (occurrence: CO)
  Receive Date: 20220422
  Receipt Date: 20220525
  Transmission Date: 20220720
  Serious: Yes (Hospitalization, Other)
  Sender: FDA-Public Use
  Company Number: CO-ABBVIE-22K-036-4366953-00

PATIENT
  Sex: Male
  Weight: 55 kg

DRUGS (3)
  1. VENCLEXTA [Suspect]
     Active Substance: VENETOCLAX
     Indication: Acute myeloid leukaemia
     Route: 048
     Dates: start: 20220315, end: 20220420
  2. VENCLEXTA [Suspect]
     Active Substance: VENETOCLAX
     Route: 048
     Dates: start: 20220523
  3. AZACITIDINE [Concomitant]
     Active Substance: AZACITIDINE
     Indication: Prophylaxis
     Route: 058
     Dates: start: 20220523

REACTIONS (4)
  - Bone marrow failure [Recovering/Resolving]
  - Abdominal distension [Recovering/Resolving]
  - Inflammation [Recovering/Resolving]
  - Haemoglobin decreased [Unknown]

NARRATIVE: CASE EVENT DATE: 20220101
